FAERS Safety Report 6245377-X (Version None)
Quarter: 2009Q2

REPORT INFORMATION
  Report Type: 
  Country: None (occurrence: None)
  Receive Date: 20090625
  Receipt Date: 20090624
  Transmission Date: 20091009
  Serious: Yes (Other)
  Sender: FDA-Public Use
  Company Number: DE-BRISTOL-MYERS SQUIBB COMPANY-14677199

PATIENT
  Sex: Female

DRUGS (2)
  1. ORENCIA [Suspect]
     Dosage: RECEIVED ORENCIA AT STANDARD DOSE FOR A LONG TIME
     Route: 042
  2. BISPHOSPHONATES [Concomitant]
     Indication: OSTEOPOROSIS

REACTIONS (1)
  - OSTEONECROSIS [None]
